FAERS Safety Report 16426723 (Version 6)
Quarter: 2020Q2

REPORT INFORMATION
  Report Type: Spontaneous
  Country: CA (occurrence: CA)
  Receive Date: 20190613
  Receipt Date: 20200407
  Transmission Date: 20200713
  Serious: Yes (Other)
  Sender: FDA-Public Use
  Company Number: CA-PFIZER INC-2019250103

PATIENT
  Age: 49 Year
  Sex: Male

DRUGS (3)
  1. XELJANZ [Suspect]
     Active Substance: TOFACITINIB CITRATE
     Indication: COLITIS ULCERATIVE
     Dosage: 10 MG, 2X/DAY
     Route: 048
     Dates: start: 20190527, end: 2019
  2. XELJANZ [Suspect]
     Active Substance: TOFACITINIB CITRATE
     Dosage: 5 MG, 1X/DAY
     Route: 048
     Dates: start: 2019, end: 2020
  3. PREDNISONE. [Suspect]
     Active Substance: PREDNISONE
     Dosage: UNK
     Route: 065
     Dates: start: 201906

REACTIONS (20)
  - Abdominal discomfort [Unknown]
  - Eye inflammation [Recovered/Resolved]
  - Fear [Unknown]
  - Depression [Unknown]
  - Suicidal ideation [Recovered/Resolved]
  - Pain [Unknown]
  - Oral herpes [Unknown]
  - Eye discharge [Recovered/Resolved]
  - Hair growth abnormal [Unknown]
  - Frequent bowel movements [Unknown]
  - Stomatitis [Recovered/Resolved]
  - Oropharyngeal pain [Unknown]
  - Therapeutic response unexpected [Unknown]
  - Weight decreased [Unknown]
  - Dysphagia [Recovered/Resolved]
  - Drug ineffective [Unknown]
  - Condition aggravated [Unknown]
  - Asthenia [Unknown]
  - Faeces pale [Unknown]
  - Rectal haemorrhage [Unknown]

NARRATIVE: CASE EVENT DATE: 2019
